FAERS Safety Report 9949508 (Version 1)
Quarter: 2014Q1

REPORT INFORMATION
  Report Type: Spontaneous
  Country: US (occurrence: US)
  Receive Date: 20140304
  Receipt Date: 20140304
  Transmission Date: 20141002
  Serious: No
  Sender: FDA-Public Use
  Company Number: US-BAYER-2014-033285

PATIENT
  Age: 12 Year
  Sex: Female
  Weight: 91 kg

DRUGS (2)
  1. ALEVE CAPLET [Suspect]
     Dosage: UNK
     Route: 048
  2. ALEVE CAPLET [Suspect]
     Dosage: 5 DF, ONCE
     Route: 048
     Dates: start: 20140302, end: 20140302

REACTIONS (1)
  - Accidental exposure to product by child [None]
